FAERS Safety Report 19458630 (Version 1)
Quarter: 2021Q2

REPORT INFORMATION
  Report Type: Spontaneous
  Country: CA (occurrence: CA)
  Receive Date: 20210624
  Receipt Date: 20210624
  Transmission Date: 20210717
  Serious: Yes (Hospitalization, Other)
  Sender: FDA-Public Use
  Company Number: NVSC2021CA136987

PATIENT
  Age: 80 Year
  Sex: Female
  Weight: 68 kg

DRUGS (5)
  1. CEFTRIAXONE SODIUM FOR INJECTION BP [Suspect]
     Active Substance: CEFTRIAXONE SODIUM
     Indication: LEUKOCYTOSIS
     Dosage: 2 G, QD
     Route: 042
  2. ERTAPENEM. [Suspect]
     Active Substance: ERTAPENEM SODIUM
     Indication: LEUKOCYTOSIS
  3. ERTAPENEM. [Suspect]
     Active Substance: ERTAPENEM SODIUM
     Indication: DYSPNOEA
     Dosage: 1 G, QD
     Route: 042
  4. CEFTRIAXONE SODIUM FOR INJECTION BP [Suspect]
     Active Substance: CEFTRIAXONE SODIUM
     Indication: DYSPNOEA
  5. IMATINIB. [Concomitant]
     Active Substance: IMATINIB MESYLATE
     Indication: PRODUCT USED FOR UNKNOWN INDICATION
     Dosage: UNK
     Route: 065

REACTIONS (2)
  - Diarrhoea [Unknown]
  - Clostridium test positive [Unknown]
